FAERS Safety Report 24194208 (Version 1)
Quarter: 2024Q3

REPORT INFORMATION
  Report Type: Report from Study
  Country: US (occurrence: US)
  Receive Date: 20240809
  Receipt Date: 20240809
  Transmission Date: 20241016
  Serious: Yes (Life-Threatening, Hospitalization)
  Sender: ACCORD
  Company Number: US-Accord-439625

PATIENT
  Sex: Female
  Weight: 72.12 kg

DRUGS (1)
  1. CLOZAPINE [Suspect]
     Active Substance: CLOZAPINE
     Indication: Schizophrenia
     Dosage: 400MG, EVERY EVENING
     Route: 048

REACTIONS (4)
  - Neutropenia [Recovered/Resolved]
  - Urinary tract infection [Unknown]
  - Sepsis [Unknown]
  - White blood cell count decreased [Unknown]
